FAERS Safety Report 23674485 (Version 1)
Quarter: 2024Q1

REPORT INFORMATION
  Report Type: Spontaneous
  Country: CN (occurrence: None)
  Receive Date: 20240326
  Receipt Date: 20240326
  Transmission Date: 20240410
  Serious: Yes (Other)
  Sender: FDA-Public Use
  Company Number: 2024A061507

PATIENT
  Age: 65 Year
  Sex: Male

DRUGS (4)
  1. OLAPARIB [Suspect]
     Active Substance: OLAPARIB
     Indication: Penile squamous cell carcinoma
     Dosage: 300 MILLIGRAM, BID
     Route: 048
     Dates: start: 202105
  2. PEMBROLIZUMAB [Suspect]
     Active Substance: PEMBROLIZUMAB
     Indication: Penile squamous cell carcinoma
     Dosage: 200 MG D4
     Dates: start: 202009
  3. PEMBROLIZUMAB [Suspect]
     Active Substance: PEMBROLIZUMAB
     Indication: Penile squamous cell carcinoma
     Dates: start: 202105
  4. CATEQUENTINIB [Suspect]
     Active Substance: CATEQUENTINIB
     Indication: Penile squamous cell carcinoma
     Dosage: 12 MG ONCE A DAY FROM DAY 1 TO 21 OF A 21-DAY CYCLE
     Dates: start: 202105

REACTIONS (6)
  - Drug resistance [Unknown]
  - Acquired gene mutation [Unknown]
  - Malignant neoplasm progression [Unknown]
  - Metastases to lung [Unknown]
  - Product use issue [Unknown]
  - Off label use [Unknown]

NARRATIVE: CASE EVENT DATE: 20200901
